FAERS Safety Report 13429903 (Version 3)
Quarter: 2017Q3

REPORT INFORMATION
  Report Type: Spontaneous
  Country: DE (occurrence: DE)
  Receive Date: 20170412
  Receipt Date: 20170803
  Transmission Date: 20171127
  Serious: Yes (Death, Other)
  Sender: FDA-Public Use
  Company Number: DE-BRISTOL-MYERS SQUIBB COMPANY-BMS-2017-029408

PATIENT
  Age: 71 Year
  Sex: Male
  Weight: 101 kg

DRUGS (2)
  1. NIVOLUMAB [Suspect]
     Active Substance: NIVOLUMAB
     Indication: PRODUCT USED FOR UNKNOWN INDICATION
     Dosage: 309 MG, UNK
     Route: 042
     Dates: start: 20170315
  2. NIVOLUMAB [Suspect]
     Active Substance: NIVOLUMAB
     Indication: NON-SMALL CELL LUNG CANCER
     Dosage: 309 MG, UNK
     Route: 042
     Dates: start: 20170301

REACTIONS (2)
  - Myositis [Fatal]
  - Blood creatine phosphokinase increased [Fatal]

NARRATIVE: CASE EVENT DATE: 20170324
